FAERS Safety Report 7266628-9 (Version None)
Quarter: 2011Q1

REPORT INFORMATION
  Report Type: 
  Country: None (occurrence: None)
  Receive Date: 20110131
  Receipt Date: 20110118
  Transmission Date: 20110831
  Serious: Yes (Hospitalization, Other)
  Sender: FDA-Public Use
  Company Number: US-ELI_LILLY_AND_COMPANY-US200904004725

PATIENT
  Sex: Female

DRUGS (8)
  1. VITAMIN D [Concomitant]
  2. NEXIUM [Concomitant]
  3. COSAMIN DS [Concomitant]
  4. PRAVASTATIN [Concomitant]
  5. EVISTA [Suspect]
     Indication: OSTEOPOROSIS
     Dosage: 60 MG, DAILY (1/D)
  6. CALCIUM [Concomitant]
  7. FISH OIL [Concomitant]
  8. OMEPRAZOLE [Concomitant]

REACTIONS (5)
  - HIP ARTHROPLASTY [None]
  - OSTEONECROSIS [None]
  - HIP FRACTURE [None]
  - HOT FLUSH [None]
  - DYSPNOEA [None]
